FAERS Safety Report 23105533 (Version 1)
Quarter: 2023Q4

REPORT INFORMATION
  Report Type: Spontaneous
  Country: US (occurrence: None)
  Receive Date: 20231023
  Receipt Date: 20231023
  Transmission Date: 20240109
  Serious: Yes (Hospitalization)
  Sender: FDA-Public Use
  Company Number: None

PATIENT
  Age: 64 Year
  Sex: Male
  Weight: 120 kg

DRUGS (1)
  1. LISINOPRIL [Suspect]
     Active Substance: LISINOPRIL
     Dosage: FREQUENCY : DAILY;?
     Route: 048
     Dates: start: 20200605, end: 20230126

REACTIONS (5)
  - Angioedema [None]
  - Pain [None]
  - Lip swelling [None]
  - Oedema peripheral [None]
  - Therapy cessation [None]

NARRATIVE: CASE EVENT DATE: 20230126
